FAERS Safety Report 5584490-7 (Version None)
Quarter: 2008Q1

REPORT INFORMATION
  Report Type: 
  Country: None (occurrence: None)
  Receive Date: 20080103
  Receipt Date: 20071221
  Transmission Date: 20080703
  Serious: Yes (Hospitalization, Other)
  Sender: FDA-Public Use
  Company Number: CERZ-11987

PATIENT
  Age: 15 Year

DRUGS (1)
  1. CEREZYME             (IMIGLUCERASE) [Suspect]
     Indication: GAUCHER'S DISEASE
     Dosage: 60 U/KG, INTRAVENOUS
     Route: 042

REACTIONS (7)
  - ASCITES [None]
  - CONDITION AGGRAVATED [None]
  - GENERALISED OEDEMA [None]
  - HEPATOCELLULAR INJURY [None]
  - HYPOALBUMINAEMIA [None]
  - PERICARDIAL EFFUSION [None]
  - PLEURAL EFFUSION [None]
